FAERS Safety Report 4316921-4 (Version None)
Quarter: 2004Q1

REPORT INFORMATION
  Report Type: 
  Country: None (occurrence: None)
  Receive Date: 20040308
  Receipt Date: 20040205
  Transmission Date: 20041129
  Serious: No
  Sender: FDA-Public Use
  Company Number: ALMO2004007

PATIENT
  Sex: Female

DRUGS (3)
  1. ALMOTRIPTAN [Suspect]
     Dosage: 2 DF DAILY
  2. ANALGESIC LIQ [Concomitant]
  3. DROPS AGAINST NAUSEA [Concomitant]

REACTIONS (1)
  - DRUG EXPOSURE DURING PREGNANCY [None]
